FAERS Safety Report 18709255 (Version 1)
Quarter: 2021Q1

REPORT INFORMATION
  Report Type: Spontaneous
  Country: GB (occurrence: GB)
  Receive Date: 20210106
  Receipt Date: 20210106
  Transmission Date: 20210419
  Serious: Yes (Disabling)
  Sender: FDA-Public Use
  Company Number: GB-TEVA-2020-GB-1865463

PATIENT
  Age: 37 Year
  Sex: Female
  Weight: 47 kg

DRUGS (9)
  1. GABAPENTIN. [Suspect]
     Active Substance: GABAPENTIN
     Dosage: 100 MG
     Dates: start: 20200924
  2. MEBEVERINE HYDROCHLORIDE [Concomitant]
     Active Substance: MEBEVERINE HYDROCHLORIDE
     Dosage: 3 DOSAGE FORMS ,TWENTY MINUTE...
     Dates: start: 20200819, end: 20201104
  3. CLOBETASONE BUTYRATE [Concomitant]
     Active Substance: CLOBETASONE BUTYRATE
     Dosage: TO BE APPLIED TO  THE AFFECTED AREA(S) TWICE A ...
     Dates: start: 20200924, end: 20201008
  4. PREGABALIN. [Concomitant]
     Active Substance: PREGABALIN
     Dosage: 3 DOSAGE FORMS
     Dates: start: 20201103
  5. CETIRIZINE [Concomitant]
     Active Substance: CETIRIZINE HYDROCHLORIDE
     Dosage: 1 DOSAGE FORMS
     Dates: start: 20200819, end: 20201104
  6. SODIUM CROMOGLICATE [Concomitant]
     Active Substance: CROMOLYN SODIUM
     Dosage: 8 GTT
     Dates: start: 20200819, end: 20201104
  7. SALBUTAMOL [Concomitant]
     Active Substance: ALBUTEROL
     Dosage: ONE OR TWO PUFFS
     Route: 055
     Dates: start: 20200819
  8. CLENIL MODULITE [Concomitant]
     Active Substance: BECLOMETHASONE DIPROPIONATE
     Dosage: 4 DOSAGE FORMS
     Route: 055
     Dates: start: 20200819
  9. DOMPERIDONE [Concomitant]
     Active Substance: DOMPERIDONE
     Dosage: UNIT DOSE 30 MG ,UP TO 3 X A DAY BEFORE MEALS FOR A USUAL MAX OF 1 WEEK; MAX 30MG (3 TAB) PER DAY.
     Dates: start: 20201015, end: 20201022

REACTIONS (1)
  - Urticaria [Recovered/Resolved]

NARRATIVE: CASE EVENT DATE: 20200927
